FAERS Safety Report 19993340 (Version 10)
Quarter: 2022Q3

REPORT INFORMATION
  Report Type: Spontaneous
  Country: US (occurrence: US)
  Receive Date: 20211025
  Receipt Date: 20220916
  Transmission Date: 20221027
  Serious: No
  Sender: FDA-Public Use
  Company Number: US-PFIZER INC-202101392758

PATIENT
  Age: 69 Year
  Sex: Female

DRUGS (4)
  1. IBRANCE [Suspect]
     Active Substance: PALBOCICLIB
     Indication: Breast cancer female
     Dosage: 125 MG
  2. IBRANCE [Suspect]
     Active Substance: PALBOCICLIB
     Dosage: DAILY TAKE WITH OR WITHOUT FOOD ON DAYS 1-14 OF 28 DAYS CYCLE
     Route: 048
     Dates: start: 20220323
  3. IBRANCE [Suspect]
     Active Substance: PALBOCICLIB
     Dosage: DAILY WITH OR WITHOUT FOOD ON DAYS 1 -14 OF 28 DAY CYCLE
     Route: 048
     Dates: start: 20220712
  4. IBRANCE [Suspect]
     Active Substance: PALBOCICLIB
     Dosage: 75 MG, CYCLIC (DAILY TAKE WITH OR WITHOUT FOOD ON DAYS 1-14 OF 28 DAYS CYCLE)
     Route: 048

REACTIONS (8)
  - Product prescribing error [Unknown]
  - Tinnitus [Unknown]
  - Weight increased [Unknown]
  - Neoplasm recurrence [Unknown]
  - Headache [Unknown]
  - Alopecia [Unknown]
  - Dry eye [Unknown]
  - Sinusitis [Unknown]
